FAERS Safety Report 5619566-9 (Version None)
Quarter: 2008Q1

REPORT INFORMATION
  Report Type: 
  Country: None (occurrence: None)
  Receive Date: 20080205
  Receipt Date: 20080205
  Transmission Date: 20080703
  Serious: No
  Sender: FDA-Public Use
  Company Number: None

PATIENT
  Age: 57 Year
  Sex: Female
  Weight: 65.7716 kg

DRUGS (2)
  1. BONIVA [Suspect]
     Indication: OSTEOPENIA
     Dosage: 1X MONTH JUST STARTED 1 MON
     Dates: start: 20080112, end: 20080201
  2. FOSAMAX [Suspect]
     Dosage: 1X WEEK TOOK FOR9 MONTHS
     Dates: start: 20070301, end: 20071231

REACTIONS (2)
  - ARTHRALGIA [None]
  - MYALGIA [None]
